FAERS Safety Report 18437843 (Version 3)
Quarter: 2021Q2

REPORT INFORMATION
  Report Type: Report from Study
  Country: CN (occurrence: CN)
  Receive Date: 20201028
  Receipt Date: 20210528
  Transmission Date: 20210717
  Serious: Yes (Other)
  Sender: FDA-Public Use
  Company Number: CN-ASTRAZENECA-2020SF40284

PATIENT
  Age: 18977 Day
  Sex: Female

DRUGS (16)
  1. METHYLPREDNISOLONE SODIUM SUCCINATE FOR INJECTION [Concomitant]
     Active Substance: METHYLPREDNISOLONE SODIUM SUCCINATE
     Indication: HEPATIC FUNCTION ABNORMAL
     Route: 042
     Dates: start: 20200926, end: 20200928
  2. METHYLPREDNISOLONE SODIUM SUCCINATE FOR INJECTION [Concomitant]
     Active Substance: METHYLPREDNISOLONE SODIUM SUCCINATE
     Indication: LIVER INJURY
     Route: 042
     Dates: start: 20200926, end: 20200928
  3. CISPLATIN. [Suspect]
     Active Substance: CISPLATIN
     Indication: CERVIX CARCINOMA
     Dosage: 40 MG/M2 ONCE A WEEK
     Route: 042
     Dates: start: 20200824, end: 20200824
  4. CISPLATIN. [Suspect]
     Active Substance: CISPLATIN
     Indication: CERVIX CARCINOMA
     Dosage: 40 MG/M2 ONCE A WEEK
     Route: 042
     Dates: start: 20200817, end: 20200817
  5. CISPLATIN. [Suspect]
     Active Substance: CISPLATIN
     Indication: CERVIX CARCINOMA
     Dosage: 40 MG/M2 ONCE A WEEK
     Route: 042
     Dates: start: 20200914, end: 20200914
  6. FERROUS SUCCINATE SODIUM CITRATE/MILK POWDER/CALCIUM CARBONATE/AMINO ACIDS NOS/VITAMINS NOS/CASEIN [Concomitant]
     Indication: ANAEMIA
     Route: 048
     Dates: start: 20200921, end: 20200930
  7. MAGNESIUM ISOGLYCYRRHIZINATE INJECTION [Concomitant]
     Indication: HEPATIC FUNCTION ABNORMAL
     Dosage: 100.0 MG OTHER
     Route: 042
     Dates: start: 20200925, end: 20200926
  8. CEFOPERAZONE SODIUM SULBACTAM SODIUM FOR INJECTION [Concomitant]
     Indication: INFECTION
     Dosage: 2.0 G OTHER
     Route: 042
     Dates: start: 20200926, end: 20200930
  9. BIODIASTASE 2000/CELLULASE/PANCREATIN/DIMETICONE/SCOPOLIA SPP./URSODEOXYCHOLIC ACID/ALDIOXA [Concomitant]
     Indication: HEPATIC FUNCTION ABNORMAL
     Route: 048
     Dates: start: 20200926, end: 20201009
  10. DURVALUMAB. [Suspect]
     Active Substance: DURVALUMAB
     Indication: CERVIX CARCINOMA
     Route: 042
     Dates: start: 20200817, end: 20200817
  11. REDUCED GLUTATHIONE FOR INJECTION [Concomitant]
     Indication: LIVER INJURY
     Dosage: 1.8 G OTHER
     Route: 042
     Dates: start: 20200925, end: 20200930
  12. DURVALUMAB. [Suspect]
     Active Substance: DURVALUMAB
     Indication: CERVIX CARCINOMA
     Route: 042
     Dates: start: 20200914, end: 20200914
  13. CISPLATIN. [Suspect]
     Active Substance: CISPLATIN
     Indication: CERVIX CARCINOMA
     Dosage: 40 MG/M2 ONCE A WEEK
     Route: 042
     Dates: start: 20200907, end: 20200907
  14. REDUCED GLUTATHIONE FOR INJECTION [Concomitant]
     Indication: HEPATIC FUNCTION ABNORMAL
     Dosage: 1.8 G OTHER
     Route: 042
     Dates: start: 20200925, end: 20200930
  15. CISPLATIN. [Suspect]
     Active Substance: CISPLATIN
     Indication: CERVIX CARCINOMA
     Dosage: 40 MG/M2 ONCE A WEEK
     Route: 042
     Dates: start: 20200831, end: 20200831
  16. CEFOPERAZONE SODIUM SULBACTAM SODIUM FOR INJECTION [Concomitant]
     Indication: INFLAMMATION
     Dosage: 2.0 G OTHER
     Route: 042
     Dates: start: 20200926, end: 20200930

REACTIONS (1)
  - Cholecystitis chronic [Not Recovered/Not Resolved]

NARRATIVE: CASE EVENT DATE: 20200928
